FAERS Safety Report 16822430 (Version 3)
Quarter: 2022Q3

REPORT INFORMATION
  Report Type: Spontaneous
  Country: US (occurrence: US)
  Receive Date: 20190918
  Receipt Date: 20220916
  Transmission Date: 20221026
  Serious: No
  Sender: FDA-Public Use
  Company Number: US-PFIZER INC-2019401308

PATIENT
  Age: 60 Year
  Sex: Male

DRUGS (1)
  1. RELPAX [Suspect]
     Active Substance: ELETRIPTAN HYDROBROMIDE
     Indication: Headache
     Dosage: TAKE 1 AT ONSET OF HEADACHE. MAY REPEAT DOSE AFTER 2 HRS. MAX DOSE 80 MG/DAY
     Route: 048

REACTIONS (3)
  - Headache [Unknown]
  - Migraine [Unknown]
  - Off label use [Unknown]
